FAERS Safety Report 4896337-2 (Version None)
Quarter: 2006Q1

REPORT INFORMATION
  Report Type: 
  Country: None (occurrence: None)
  Receive Date: 20060131
  Receipt Date: 20051212
  Transmission Date: 20060701
  Serious: Yes (Hospitalization)
  Sender: FDA-Public Use
  Company Number: PHHO2005JP19584

PATIENT
  Age: 75 Year
  Sex: Female
  Weight: 67 kg

DRUGS (3)
  1. DIOVAN [Suspect]
     Indication: HYPERTENSION
     Dosage: 80 MG, QD
     Route: 048
     Dates: start: 20021206, end: 20040322
  2. SINGULAIR [Concomitant]
     Indication: ASTHMA
     Dosage: 10MG DAILY
     Route: 048
     Dates: start: 20020410
  3. ROCALTROL [Concomitant]
     Indication: OSTEOPOROSIS
     Dosage: 0.5MG DAILY
     Route: 048
     Dates: start: 20020410

REACTIONS (6)
  - CARDIAC FAILURE [None]
  - HYPOTENSION [None]
  - PULMONARY CONGESTION [None]
  - RIB FRACTURE [None]
  - ROAD TRAFFIC ACCIDENT [None]
  - THORACIC VERTEBRAL FRACTURE [None]
